FAERS Safety Report 24962107 (Version 1)
Quarter: 2025Q1

REPORT INFORMATION
  Report Type: Spontaneous
  Country: DE (occurrence: DE)
  Receive Date: 20250212
  Receipt Date: 20250212
  Transmission Date: 20250409
  Serious: Yes (Other)
  Sender: NOVARTIS
  Company Number: DE-002147023-NVSC2025DE024285

PATIENT
  Age: 53 Year
  Sex: Male
  Weight: 97 kg

DRUGS (5)
  1. TASIGNA [Suspect]
     Active Substance: NILOTINIB
     Indication: Chronic myeloid leukaemia
     Dosage: 300 MG, BID (300 MG / 2 DOSAGE FORMS)(4 X DAILY)
     Route: 048
     Dates: start: 20191204, end: 20201029
  2. TASIGNA [Suspect]
     Active Substance: NILOTINIB
     Dosage: 600 MG, BID (2X300 MG)
     Route: 048
     Dates: start: 20201125, end: 20201217
  3. RISEDRONATE SODIUM [Suspect]
     Active Substance: RISEDRONATE SODIUM
     Indication: Malaise
     Route: 065
     Dates: start: 20201125, end: 20210510
  4. RISEDRONATE SODIUM [Suspect]
     Active Substance: RISEDRONATE SODIUM
     Indication: Bone marrow disorder
  5. RISEDRONATE SODIUM [Suspect]
     Active Substance: RISEDRONATE SODIUM
     Indication: Osteoarthritis

REACTIONS (24)
  - Chondropathy [Not Recovered/Not Resolved]
  - Blood pressure increased [Unknown]
  - Inappropriate schedule of product administration [Unknown]
  - Pain [Unknown]
  - Nocturia [Unknown]
  - Incorrect dose administered [Unknown]
  - Haemoglobin decreased [Unknown]
  - Monocyte count increased [Recovered/Resolved]
  - Cytogenetic analysis abnormal [Recovered/Resolved]
  - Lymphocyte count decreased [Recovered/Resolved]
  - Lymphocyte count increased [Unknown]
  - Eosinophil count increased [Recovered/Resolved]
  - Dry skin [Unknown]
  - Gamma-glutamyltransferase increased [Unknown]
  - Monocyte count decreased [Unknown]
  - Band neutrophil count decreased [Unknown]
  - Blood albumin increased [Unknown]
  - Bronchitis chronic [Unknown]
  - Headache [Unknown]
  - Back pain [Not Recovered/Not Resolved]
  - Haematocrit decreased [Unknown]
  - Nutritional condition abnormal [Unknown]
  - Stress [Unknown]
  - Obesity [Unknown]

NARRATIVE: CASE EVENT DATE: 20191211
